FAERS Safety Report 8819490 (Version 1)
Quarter: 2012Q4

REPORT INFORMATION
  Report Type: 
  Country: US (occurrence: US)
  Receive Date: 20120930
  Receipt Date: 20120930
  Transmission Date: 20130627
  Serious: No
  Sender: FDA-Public Use
  Company Number: US-TEVA-360937USA

PATIENT
  Sex: Female

DRUGS (3)
  1. COPAXONE [Suspect]
     Dosage: Unknown
  2. AMPYRA [Suspect]
     Dates: start: 201206
  3. CARDIZEM [Concomitant]

REACTIONS (2)
  - Injection site mass [Unknown]
  - Injection site reaction [Unknown]
